FAERS Safety Report 19190707 (Version 2)
Quarter: 2021Q2

REPORT INFORMATION
  Report Type: Spontaneous
  Country: DE (occurrence: DE)
  Receive Date: 20210428
  Receipt Date: 20210512
  Transmission Date: 20210717
  Serious: Yes (Other)
  Sender: FDA-Public Use
  Company Number: DE-GUERBET-DE-20210023

PATIENT
  Age: 64 Year
  Sex: Female
  Weight: 90 kg

DRUGS (6)
  1. OPTIRAY 300 [Suspect]
     Active Substance: IOVERSOL
     Indication: COMPUTERISED TOMOGRAM THORAX
     Route: 042
     Dates: start: 20210325, end: 20210325
  2. OPTIRAY 300 [Interacting]
     Active Substance: IOVERSOL
     Indication: COMPUTERISED TOMOGRAM ABDOMEN
  3. GADOVIST [Interacting]
     Active Substance: GADOBUTROL
     Indication: MAGNETIC RESONANCE IMAGING
     Route: 042
     Dates: start: 20210325, end: 20210325
  4. OPTIRAY 300 [Interacting]
     Active Substance: IOVERSOL
     Indication: CANCER STAGING
  5. OPTIRAY 300 [Interacting]
     Active Substance: IOVERSOL
     Indication: MAGNETIC RESONANCE IMAGING
  6. OPTIRAY 300 [Interacting]
     Active Substance: IOVERSOL
     Indication: COMPUTERISED TOMOGRAM

REACTIONS (12)
  - Erythema [Recovered/Resolved]
  - Contrast media reaction [Recovered/Resolved]
  - Drug interaction [Recovered/Resolved]
  - Dermatitis allergic [Recovered/Resolved]
  - Nausea [Recovered/Resolved]
  - Thirst [Recovered/Resolved]
  - Rash pustular [Recovered/Resolved]
  - Rash [Recovered/Resolved]
  - Rash pruritic [Recovered/Resolved]
  - Abdominal distension [Recovered/Resolved]
  - Swelling face [Recovered/Resolved]
  - Fistula [Recovered/Resolved]

NARRATIVE: CASE EVENT DATE: 20210325
